FAERS Safety Report 15501172 (Version 1)
Quarter: 2018Q4

REPORT INFORMATION
  Report Type: Spontaneous
  Country: DE (occurrence: DE)
  Receive Date: 20181015
  Receipt Date: 20181015
  Transmission Date: 20190205
  Serious: Yes (Other)
  Sender: FDA-Public Use
  Company Number: DE-SHIRE-DE201839232

PATIENT

DRUGS (7)
  1. ADALIMUMAB [Concomitant]
     Active Substance: ADALIMUMAB
     Indication: COLITIS
     Route: 065
  2. 476 (MESALAZINE/MESALAMINE) [Suspect]
     Active Substance: MESALAMINE
     Indication: COLITIS
     Route: 065
  3. INFLIXIMAB [Concomitant]
     Active Substance: INFLIXIMAB
     Indication: COLITIS
     Route: 065
  4. CYCLOSPORIN [Concomitant]
     Active Substance: CYCLOSPORINE
     Indication: COLITIS
     Route: 042
  5. AZATHIOPRINE. [Suspect]
     Active Substance: AZATHIOPRINE
     Indication: COLITIS
     Route: 065
  6. VEDOLIZUMAB [Concomitant]
     Active Substance: VEDOLIZUMAB
     Indication: COLITIS
     Route: 065
  7. GOLIMUMAB [Concomitant]
     Active Substance: GOLIMUMAB
     Indication: COLITIS
     Route: 065

REACTIONS (3)
  - Condition aggravated [Recovered/Resolved]
  - Colitis [Recovered/Resolved]
  - Drug ineffective [Recovered/Resolved]
